FAERS Safety Report 9021842 (Version 1)
Quarter: 2013Q1

REPORT INFORMATION
  Report Type: Spontaneous
  Country: US (occurrence: US)
  Receive Date: 20130119
  Receipt Date: 20130119
  Transmission Date: 20140127
  Serious: Yes (Death, Hospitalization, Other)
  Sender: FDA-Public Use
  Company Number: US-UCBSA-075222

PATIENT
  Age: 47 Year
  Sex: Female

DRUGS (3)
  1. ALPRAZOLAM [Suspect]
     Route: 048
  2. CARISOPRODOL [Suspect]
     Route: 048
  3. OXYCODONE [Suspect]
     Route: 048

REACTIONS (2)
  - Cardio-respiratory arrest [Fatal]
  - Completed suicide [Fatal]
